FAERS Safety Report 20619815 (Version 1)
Quarter: 2022Q1

REPORT INFORMATION
  Report Type: Spontaneous
  Country: US (occurrence: US)
  Receive Date: 20220322
  Receipt Date: 20220322
  Transmission Date: 20220423
  Serious: Yes (Hospitalization, Other)
  Sender: FDA-Public Use
  Company Number: US-SA-SAC20220316000806

PATIENT
  Age: 73 Year
  Sex: Male

DRUGS (20)
  1. PLAVIX [Suspect]
     Active Substance: CLOPIDOGREL BISULFATE
     Indication: Cushing^s syndrome
     Dosage: 300 MG, QD
     Route: 048
  2. APIXABAN [Suspect]
     Active Substance: APIXABAN
     Dosage: UNK
  3. KORLYM [Concomitant]
     Active Substance: MIFEPRISTONE
     Indication: Cushing^s syndrome
     Dosage: 300MG
     Route: 048
     Dates: start: 20190727
  4. ALLEGRA [FEXOFENADINE HYDROCHLORIDE] [Concomitant]
  5. ASPIRIN [Concomitant]
     Active Substance: ASPIRIN
  6. CREON [Concomitant]
     Active Substance: PANCRELIPASE AMYLASE\PANCRELIPASE LIPASE\PANCRELIPASE PROTEASE
  7. HYDROCHLOROTHIAZIDE [Concomitant]
     Active Substance: HYDROCHLOROTHIAZIDE
  8. HYDROXYUREA [Concomitant]
     Active Substance: HYDROXYUREA
  9. LABETALOL [Concomitant]
     Active Substance: LABETALOL\LABETALOL HYDROCHLORIDE
  10. PERCOCET [Concomitant]
     Active Substance: ACETAMINOPHEN\OXYCODONE HYDROCHLORIDE
  11. SPIRONOLACTONE [Concomitant]
     Active Substance: SPIRONOLACTONE
     Dosage: 1 DF
  12. XARELTO [Concomitant]
     Active Substance: RIVAROXABAN
  13. ATORVASTATIN [Concomitant]
     Active Substance: ATORVASTATIN
  14. KLOR-CON [Concomitant]
     Active Substance: POTASSIUM CHLORIDE
  15. MAGNESIUM OXIDE [Concomitant]
     Active Substance: MAGNESIUM OXIDE
  16. CLONIDINE [Concomitant]
     Active Substance: CLONIDINE
  17. ANAGRELIDE [Concomitant]
     Active Substance: ANAGRELIDE
  18. LASIX [Concomitant]
     Active Substance: FUROSEMIDE
     Route: 042
  19. FUROSEMIDE [Concomitant]
     Active Substance: FUROSEMIDE
     Dosage: 20 MG
  20. ALLOPURINOL [Concomitant]
     Active Substance: ALLOPURINOL

REACTIONS (23)
  - Chest pain [Recovered/Resolved]
  - Gastrointestinal haemorrhage [Unknown]
  - Cerebrovascular accident [Unknown]
  - Carotid artery occlusion [Unknown]
  - Melaena [Recovered/Resolved]
  - Haemorrhage [Unknown]
  - Peripheral arterial occlusive disease [Unknown]
  - Angiopathy [Not Recovered/Not Resolved]
  - Hypoaesthesia [Unknown]
  - Peripheral coldness [Unknown]
  - Vascular injury [Unknown]
  - Blood iron decreased [Unknown]
  - Blood potassium increased [Not Recovered/Not Resolved]
  - Large intestine polyp [Not Recovered/Not Resolved]
  - Platelet count increased [Recovering/Resolving]
  - Mobility decreased [Unknown]
  - Fall [Unknown]
  - Limb mass [Recovered/Resolved]
  - Oedema [Not Recovered/Not Resolved]
  - Muscular weakness [Not Recovered/Not Resolved]
  - Pain in extremity [Unknown]
  - Fatigue [Not Recovered/Not Resolved]
  - Hypertension [Not Recovered/Not Resolved]

NARRATIVE: CASE EVENT DATE: 20210701
